FAERS Safety Report 5302219-4 (Version None)
Quarter: 2007Q2

REPORT INFORMATION
  Report Type: 
  Country: None (occurrence: None)
  Receive Date: 20070419
  Receipt Date: 20070323
  Transmission Date: 20071010
  Serious: Yes (Other)
  Sender: FDA-Public Use
  Company Number: 2007AP01823

PATIENT
  Age: 28667 Day
  Sex: Male
  Weight: 59.5 kg

DRUGS (15)
  1. OMEPRAL [Suspect]
     Indication: GASTROOESOPHAGEAL REFLUX DISEASE
     Route: 048
     Dates: start: 20070127, end: 20070201
  2. NORVASC [Concomitant]
     Route: 048
     Dates: start: 20051014
  3. SIGMART [Concomitant]
     Route: 048
     Dates: start: 20051014
  4. COMELIAN [Concomitant]
     Route: 048
     Dates: start: 20051014
  5. GASMOTIN [Concomitant]
     Route: 048
     Dates: start: 20051014
  6. RENIVACE [Concomitant]
     Route: 048
     Dates: start: 20051015
  7. CERCINE [Concomitant]
     Route: 048
     Dates: start: 20051015
  8. MUCOSTA [Concomitant]
     Route: 048
     Dates: start: 20060519
  9. HALCION [Concomitant]
     Route: 048
     Dates: start: 20061117
  10. FOSMICIN [Concomitant]
     Route: 042
     Dates: start: 20070129, end: 20070201
  11. KAKKON-TO [Concomitant]
     Route: 048
     Dates: start: 20070129, end: 20070203
  12. FLOMOX [Concomitant]
     Route: 048
     Dates: start: 20070129, end: 20070203
  13. MEDICON [Concomitant]
     Route: 048
     Dates: start: 20070129, end: 20070203
  14. ALESION [Concomitant]
     Route: 048
     Dates: start: 20070129, end: 20070203
  15. MYSLEE [Concomitant]

REACTIONS (1)
  - BLOOD CREATINE PHOSPHOKINASE INCREASED [None]
